FAERS Safety Report 6057341-4 (Version None)
Quarter: 2009Q1

REPORT INFORMATION
  Report Type: 
  Country: None (occurrence: None)
  Receive Date: 20090126
  Receipt Date: 20090107
  Transmission Date: 20090719
  Serious: Yes (Death)
  Sender: FDA-Public Use
  Company Number: B0553763A

PATIENT
  Age: 57 Year
  Sex: Female

DRUGS (5)
  1. NABUMETONE (FORMULATION UNKNOWN( (GENERIC) (NABUMETONE) [Suspect]
     Dosage: ORAL
     Route: 048
  2. OXYCODONE HCL [Suspect]
     Dosage: ORAL
     Route: 048
  3. TIZANIDINE HCL [Suspect]
     Dosage: ORAL
     Route: 048
  4. GABAPENTIN [Suspect]
     Dosage: ORAL
     Route: 048
  5. OLANZAPINE [Suspect]
     Dosage: ORAL
     Route: 048

REACTIONS (2)
  - CARDIO-RESPIRATORY ARREST [None]
  - COMPLETED SUICIDE [None]
